FAERS Safety Report 25007975 (Version 2)
Quarter: 2025Q1

REPORT INFORMATION
  Report Type: Report from Study
  Country: US (occurrence: US)
  Receive Date: 20250225
  Receipt Date: 20250228
  Transmission Date: 20250409
  Serious: Yes (Other)
  Sender: ABBVIE
  Company Number: US-ABBVIE-6143720

PATIENT
  Age: 76 Year
  Sex: Female
  Weight: 85.728 kg

DRUGS (1)
  1. SKYRIZI [Suspect]
     Active Substance: RISANKIZUMAB-RZAA
     Indication: Psoriasis
     Dosage: FORM STRENGTH: 150MG
     Route: 058
     Dates: start: 20191114

REACTIONS (9)
  - Intervertebral disc protrusion [Not Recovered/Not Resolved]
  - Inflammation [Recovering/Resolving]
  - Skin lesion [Recovering/Resolving]
  - Back pain [Recovering/Resolving]
  - Spinal fusion acquired [Unknown]
  - Dry skin [Recovered/Resolved]
  - Skin exfoliation [Recovering/Resolving]
  - Muscle spasms [Recovered/Resolved]
  - Dry skin [Recovered/Resolved]

NARRATIVE: CASE EVENT DATE: 20241101
